FAERS Safety Report 5011353-8 (Version None)
Quarter: 2006Q2

REPORT INFORMATION
  Report Type: 
  Country: None (occurrence: None)
  Receive Date: 20060404
  Receipt Date: 20050909
  Transmission Date: 20061013
  Serious: No
  Sender: FDA-Public Use
  Company Number: USA0509107273

PATIENT
  Sex: Female

DRUGS (2)
  1. CYMBALTA [Suspect]
     Indication: DEPRESSION
     Dosage: 60 MG, DAILY (1/D)
     Dates: start: 20050601
  2. BLOOD PRESSUER MEDICATION [Concomitant]

REACTIONS (7)
  - BACK INJURY [None]
  - FEELING HOT [None]
  - HYPERHIDROSIS [None]
  - INSOMNIA [None]
  - MIDDLE INSOMNIA [None]
  - MUSCLE SPASMS [None]
  - RESTLESS LEGS SYNDROME [None]
